FAERS Safety Report 16112572 (Version 4)
Quarter: 2021Q2

REPORT INFORMATION
  Report Type: Spontaneous
  Country: US (occurrence: US)
  Receive Date: 20190325
  Receipt Date: 20210630
  Transmission Date: 20210716
  Serious: Yes (Other)
  Sender: FDA-Public Use
  Company Number: US-PFIZER INC-2019119686

PATIENT
  Age: 58 Year
  Sex: Female
  Weight: 71 kg

DRUGS (6)
  1. LYRICA [Suspect]
     Active Substance: PREGABALIN
     Dosage: 150 MG, THRICE A DAY (ONE CAPSULE BY MOUTH THREE TIMES EVERY DAY, AS NEEDED)
     Route: 048
  2. LYRICA [Suspect]
     Active Substance: PREGABALIN
     Dosage: 75 MG, THRICE A DAY (ONE CAPSULE BY MOUTH THREE TIMES EVERY DAY WORK COMP FOR PAIN AS NEEDED)
     Route: 048
  3. LYRICA [Suspect]
     Active Substance: PREGABALIN
     Dosage: 75 MG, FOUR TIMES A DAY
     Route: 048
  4. LYRICA [Suspect]
     Active Substance: PREGABALIN
     Indication: PAIN
     Dosage: UNK, THRICE A DAY
  5. LYRICA [Suspect]
     Active Substance: PREGABALIN
     Indication: NEUROPATHY PERIPHERAL
     Dosage: 150 MG, THRICE A DAY
     Route: 048
     Dates: start: 2018
  6. HYDROCODONE [Concomitant]
     Active Substance: HYDROCODONE
     Dosage: 325 MG, 3X/DAY
     Route: 048

REACTIONS (4)
  - Diarrhoea [Not Recovered/Not Resolved]
  - Back pain [Unknown]
  - Seizure [Unknown]
  - Headache [Unknown]

NARRATIVE: CASE EVENT DATE: 20190228
